FAERS Safety Report 11168112 (Version 4)
Quarter: 2015Q3

REPORT INFORMATION
  Report Type: Spontaneous
  Country: US (occurrence: US)
  Receive Date: 20150605
  Receipt Date: 20150728
  Transmission Date: 20151125
  Serious: Yes (Hospitalization)
  Sender: FDA-Public Use
  Company Number: US-HORIZON-RAV-0021-2015

PATIENT
  Age: 13 Year
  Sex: Female

DRUGS (1)
  1. RAVICTI [Suspect]
     Active Substance: GLYCEROL PHENYLBUTYRATE
     Indication: ORNITHINE TRANSCARBAMOYLASE DEFICIENCY
     Dosage: INCREASED ON 12-JUN-2015 TO 3.5 ML QID
     Dates: start: 20130419

REACTIONS (5)
  - Localised infection [Unknown]
  - Ammonia increased [Unknown]
  - Amino acid level increased [Unknown]
  - Hepatic enzyme increased [Unknown]
  - Biopsy liver [Recovered/Resolved]

NARRATIVE: CASE EVENT DATE: 20150611
